FAERS Safety Report 6710496-8 (Version None)
Quarter: 2010Q2

REPORT INFORMATION
  Report Type: 
  Country: None (occurrence: None)
  Receive Date: 20100504
  Receipt Date: 20100422
  Transmission Date: 20101027
  Serious: Yes (Other)
  Sender: FDA-Public Use
  Company Number: PHHY2010JP24928

PATIENT
  Age: 50 Year
  Sex: Female

DRUGS (2)
  1. CYCLOSPORINE [Suspect]
     Indication: SYSTEMIC LUPUS ERYTHEMATOSUS
     Dosage: UNK
     Route: 048
     Dates: end: 20070201
  2. TACROLIMUS [Suspect]
     Indication: LUPUS NEPHRITIS
     Dosage: UNK
     Dates: start: 20070201

REACTIONS (8)
  - ANHEDONIA [None]
  - BRADYCARDIA [None]
  - FREEZING PHENOMENON [None]
  - HEADACHE [None]
  - PARKINSON'S DISEASE [None]
  - PSYCHOMOTOR SKILLS IMPAIRED [None]
  - TREMOR [None]
  - VOMITING [None]
